FAERS Safety Report 25612027 (Version 1)
Quarter: 2025Q3

REPORT INFORMATION
  Report Type: Report from Study
  Country: US (occurrence: US)
  Receive Date: 20250728
  Receipt Date: 20250728
  Transmission Date: 20251021
  Serious: Yes (Other)
  Sender: CHATTEM
  Company Number: US-OPELLA-2025OHG021667

PATIENT
  Sex: Male

DRUGS (5)
  1. MENTHOL\METHYL SALICYLATE [Suspect]
     Active Substance: MENTHOL\METHYL SALICYLATE
     Indication: Product used for unknown indication
     Route: 065
  2. ICY HOT (MENTHOL) [Suspect]
     Active Substance: MENTHOL
     Indication: Product used for unknown indication
     Route: 065
  3. ICY HOT (MENTHOL) [Suspect]
     Active Substance: MENTHOL
     Indication: Product used for unknown indication
     Route: 065
  4. ICY HOT (MENTHOL) [Suspect]
     Active Substance: MENTHOL
     Indication: Product used for unknown indication
     Route: 065
  5. MENTHOL\METHYL SALICYLATE [Suspect]
     Active Substance: MENTHOL\METHYL SALICYLATE
     Indication: Product used for unknown indication
     Route: 065

REACTIONS (6)
  - Hypersensitivity [Recovered/Resolved]
  - Respiratory arrest [Recovered/Resolved]
  - Hypersensitivity [Recovered/Resolved]
  - Hypersensitivity [Recovered/Resolved]
  - Hypersensitivity [Recovered/Resolved with Sequelae]
  - Hypersensitivity [Recovered/Resolved]
